FAERS Safety Report 6360247-4 (Version None)
Quarter: 2009Q3

REPORT INFORMATION
  Report Type: 
  Country: None (occurrence: None)
  Receive Date: 20090917
  Receipt Date: 20090915
  Transmission Date: 20100115
  Serious: Yes (Death)
  Sender: FDA-Public Use
  Company Number: US-CELGENEUS-163-21880-09081331

PATIENT
  Sex: Male

DRUGS (2)
  1. REVLIMID [Suspect]
     Route: 048
     Dates: start: 20080701, end: 20090401
  2. REVLIMID [Suspect]
     Route: 048
     Dates: start: 20070601, end: 20080601

REACTIONS (1)
  - CARDIAC FAILURE CONGESTIVE [None]
